FAERS Safety Report 14538520 (Version 4)
Quarter: 2018Q2

REPORT INFORMATION
  Report Type: Spontaneous
  Country: US (occurrence: US)
  Receive Date: 20180216
  Receipt Date: 20180503
  Transmission Date: 20180711
  Serious: Yes (Hospitalization, Other)
  Sender: FDA-Public Use
  Company Number: US-KITE, A GILEAD COMPANY-2042113

PATIENT
  Age: 48 Year
  Sex: Female

DRUGS (88)
  1. ENOXAPARIN [Concomitant]
     Active Substance: ENOXAPARIN
     Dates: start: 20180123, end: 20180129
  2. GRANISETRON [Concomitant]
     Active Substance: GRANISETRON
     Dates: start: 20180130, end: 20180130
  3. LORAZEPAM. [Concomitant]
     Active Substance: LORAZEPAM
     Dates: start: 20180123, end: 20180123
  4. OXYCODONE [Concomitant]
     Active Substance: OXYCODONE
     Dates: start: 20180130, end: 20180130
  5. POTASSIUM CHLORIDE. [Concomitant]
     Active Substance: POTASSIUM CHLORIDE
     Dates: start: 20180127, end: 20180127
  6. PROCHLORPERAZINE. [Concomitant]
     Active Substance: PROCHLORPERAZINE
     Dates: start: 20180122, end: 20180122
  7. PROCHLORPERAZINE. [Concomitant]
     Active Substance: PROCHLORPERAZINE
     Dates: start: 20180126, end: 20180126
  8. SERTRALINE [Concomitant]
     Active Substance: SERTRALINE HYDROCHLORIDE
     Dates: start: 20180126, end: 20180130
  9. ACYCLOVIR. [Concomitant]
     Active Substance: ACYCLOVIR
     Dates: start: 20180123, end: 20180123
  10. ACYCLOVIR. [Concomitant]
     Active Substance: ACYCLOVIR
     Dates: start: 20180130, end: 20180130
  11. ALLOPURINOL. [Concomitant]
     Active Substance: ALLOPURINOL
     Dates: start: 20180125, end: 20180125
  12. HYDROMORPHONE [Concomitant]
     Active Substance: HYDROMORPHONE
     Dates: start: 20180125, end: 20180125
  13. LEVOTHYROXINE. [Concomitant]
     Active Substance: LEVOTHYROXINE
     Dates: start: 20180123, end: 20180124
  14. LORATADINE. [Concomitant]
     Active Substance: LORATADINE
     Dates: start: 20180122, end: 20180124
  15. MULTIVITAMIN [Concomitant]
     Active Substance: VITAMINS
     Dates: start: 20180123, end: 20180124
  16. OXYCODONE [Concomitant]
     Active Substance: OXYCODONE
     Dates: start: 20180122, end: 20180122
  17. OXYCODONE [Concomitant]
     Active Substance: OXYCODONE
     Dates: start: 20180129, end: 20180129
  18. PROCHLORPERAZINE. [Concomitant]
     Active Substance: PROCHLORPERAZINE
     Dates: start: 20180127, end: 20180127
  19. PROCHLORPERAZINE. [Concomitant]
     Active Substance: PROCHLORPERAZINE
     Dates: start: 20180128, end: 20180130
  20. SODIUM PHOSPHATE [Concomitant]
     Active Substance: SODIUM PHOSPHATE
     Dates: start: 20180124, end: 20180124
  21. ACYCLOVIR. [Concomitant]
     Active Substance: ACYCLOVIR
     Dates: start: 20180124, end: 20180124
  22. CEFEPIME [Concomitant]
     Active Substance: CEFEPIME HYDROCHLORIDE
     Route: 042
     Dates: start: 20180122, end: 20180123
  23. CEFEPIME [Concomitant]
     Active Substance: CEFEPIME HYDROCHLORIDE
     Route: 042
     Dates: start: 20180124, end: 20180124
  24. DIPHENHYDRAMINE. [Concomitant]
     Active Substance: DIPHENHYDRAMINE
     Route: 048
     Dates: start: 20180123, end: 20180123
  25. LEVETIRACETAM. [Concomitant]
     Active Substance: LEVETIRACETAM
     Dates: start: 20180126, end: 20180129
  26. LEVETIRACETAM. [Concomitant]
     Active Substance: LEVETIRACETAM
     Dates: start: 20180123, end: 20180124
  27. LORAZEPAM. [Concomitant]
     Active Substance: LORAZEPAM
     Dates: start: 20180127, end: 20180127
  28. OXYCODONE [Concomitant]
     Active Substance: OXYCODONE
     Dates: start: 20180127, end: 20180127
  29. PROCHLORPERAZINE. [Concomitant]
     Active Substance: PROCHLORPERAZINE
     Dates: start: 20180124, end: 20180124
  30. SODIUM CHLORIDE. [Concomitant]
     Active Substance: SODIUM CHLORIDE
     Dates: start: 20180125, end: 20180125
  31. ACETAMINOPHEN. [Concomitant]
     Active Substance: ACETAMINOPHEN
     Dates: start: 20180126, end: 20180126
  32. ACYCLOVIR. [Concomitant]
     Active Substance: ACYCLOVIR
     Dates: start: 20180126, end: 20180129
  33. LORAZEPAM. [Concomitant]
     Active Substance: LORAZEPAM
     Dates: start: 20180126, end: 20180126
  34. OXYCODONE [Concomitant]
     Active Substance: OXYCODONE
     Dates: start: 20180128, end: 20180128
  35. POTASSIUM CHLORIDE. [Concomitant]
     Active Substance: POTASSIUM CHLORIDE
     Dates: start: 20180125, end: 20180125
  36. PROCHLORPERAZINE. [Concomitant]
     Active Substance: PROCHLORPERAZINE
     Dates: start: 20180128, end: 20180129
  37. SODIUM CHLORIDE. [Concomitant]
     Active Substance: SODIUM CHLORIDE
     Dates: start: 20180126, end: 20180126
  38. SULFAMETHOXAZOLE AND TRIMETHOPRIM [Concomitant]
     Active Substance: SULFAMETHOXAZOLE\TRIMETHOPRIM
     Dates: start: 20180123, end: 20180130
  39. VANCOMYCIN [Concomitant]
     Active Substance: VANCOMYCIN
     Dates: start: 20180122, end: 20180122
  40. VANCOMYCIN [Concomitant]
     Active Substance: VANCOMYCIN
     Dates: start: 20180123, end: 20180123
  41. LACTATED RINGERS (CALCIUM CHLORIDE, POTASSIUM CHLORIDE, SODIUM LACTATE [Concomitant]
     Dates: start: 20180127, end: 20180127
  42. LACTATED RINGERS (CALCIUM CHLORIDE, POTASSIUM CHLORIDE, SODIUM LACTATE [Concomitant]
     Dates: start: 20180128, end: 20180128
  43. ACETAMINOPHEN. [Concomitant]
     Active Substance: ACETAMINOPHEN
     Dates: start: 20180124, end: 20180124
  44. ACETAMINOPHEN. [Concomitant]
     Active Substance: ACETAMINOPHEN
     Dates: start: 20180127, end: 20180127
  45. ACETAMINOPHEN. [Concomitant]
     Active Substance: ACETAMINOPHEN
     Dates: start: 20180128, end: 20180128
  46. ALLOPURINOL. [Concomitant]
     Active Substance: ALLOPURINOL
     Dates: start: 20180123, end: 20180123
  47. CEFEPIME [Concomitant]
     Active Substance: CEFEPIME HYDROCHLORIDE
     Route: 042
     Dates: start: 20180125, end: 20180129
  48. ESTRADIOL. [Concomitant]
     Active Substance: ESTRADIOL
     Dates: start: 20180124, end: 20180125
  49. FENTANYL. [Concomitant]
     Active Substance: FENTANYL
     Dates: start: 20180223, end: 20180223
  50. FILGRASTIM [Concomitant]
     Active Substance: FILGRASTIM
     Dates: start: 20180122, end: 20180125
  51. FOLIC ACID. [Concomitant]
     Active Substance: FOLIC ACID
     Dates: start: 20180123, end: 20180124
  52. LEVETIRACETAM. [Concomitant]
     Active Substance: LEVETIRACETAM
     Dates: start: 20180122, end: 20180122
  53. LEVETIRACETAM. [Concomitant]
     Active Substance: LEVETIRACETAM
     Dates: start: 20180130, end: 20180130
  54. LORAZEPAM. [Concomitant]
     Active Substance: LORAZEPAM
     Dates: start: 20180125, end: 20180125
  55. POTASSIUM CHLORIDE. [Concomitant]
     Active Substance: POTASSIUM CHLORIDE
     Dates: start: 20180126, end: 20180126
  56. PROCHLORPERAZINE. [Concomitant]
     Active Substance: PROCHLORPERAZINE
     Dates: start: 20180123, end: 20180123
  57. SODIUM CHLORIDE. [Concomitant]
     Active Substance: SODIUM CHLORIDE
     Dates: start: 20180129, end: 20180129
  58. ACETAMINOPHEN. [Concomitant]
     Active Substance: ACETAMINOPHEN
     Dates: start: 20180123, end: 20180123
  59. ACYCLOVIR. [Concomitant]
     Active Substance: ACYCLOVIR
     Dates: start: 20180125, end: 20180125
  60. ALMOTRIPTAN. [Concomitant]
     Active Substance: ALMOTRIPTAN
     Dates: start: 20180123, end: 20180123
  61. LEVOTHYROXINE. [Concomitant]
     Active Substance: LEVOTHYROXINE
     Dates: start: 20180126, end: 20180130
  62. MULTIVITAMIN [Concomitant]
     Active Substance: VITAMINS
     Dates: start: 20180126, end: 20180130
  63. ONDANSETRON [Concomitant]
     Active Substance: ONDANSETRON
     Dates: start: 20180123, end: 20180123
  64. ONDANSETRON [Concomitant]
     Active Substance: ONDANSETRON
     Dates: start: 20180125, end: 20180125
  65. PROCHLORPERAZINE. [Concomitant]
     Active Substance: PROCHLORPERAZINE
     Dates: start: 20180125, end: 20180125
  66. SERTRALINE [Concomitant]
     Active Substance: SERTRALINE HYDROCHLORIDE
     Dates: start: 20180123, end: 20180124
  67. VANCOMYCIN [Concomitant]
     Active Substance: VANCOMYCIN
     Dates: start: 20180124, end: 20180124
  68. LACTATED RINGERS (CALCIUM CHLORIDE, POTASSIUM CHLORIDE, SODIUM LACTATE [Concomitant]
     Dates: start: 20180125, end: 20180126
  69. LEVETIRACETAM. [Concomitant]
     Active Substance: LEVETIRACETAM
     Dates: start: 20180125, end: 20180125
  70. ESTRADIOL. [Concomitant]
     Active Substance: ESTRADIOL
     Dates: start: 20180128, end: 20180128
  71. GRANISETRON [Concomitant]
     Active Substance: GRANISETRON
     Dates: start: 20180125, end: 20180129
  72. LORAZEPAM. [Concomitant]
     Active Substance: LORAZEPAM
     Dates: start: 20180128, end: 20180128
  73. MAGNESIUM SULFATE. [Concomitant]
     Active Substance: MAGNESIUM SULFATE
     Dates: start: 20180124, end: 20180124
  74. ONDANSETRON [Concomitant]
     Active Substance: ONDANSETRON
     Dates: start: 20180124, end: 20180124
  75. OXYCODONE [Concomitant]
     Active Substance: OXYCODONE
     Dates: start: 20180123, end: 20180123
  76. OXYCODONE [Concomitant]
     Active Substance: OXYCODONE
     Dates: start: 20180126, end: 20180126
  77. SODIUM CHLORIDE. [Concomitant]
     Active Substance: SODIUM CHLORIDE
     Dates: start: 20180127, end: 20180127
  78. YESCARTA [Suspect]
     Active Substance: AXICABTAGENE CILOLEUCEL
     Indication: DIFFUSE LARGE B-CELL LYMPHOMA REFRACTORY
     Route: 042
     Dates: start: 20180118, end: 20180118
  79. ACETAMINOPHEN. [Concomitant]
     Active Substance: ACETAMINOPHEN
     Dates: start: 20180124, end: 20180124
  80. ACETAMINOPHEN. [Concomitant]
     Active Substance: ACETAMINOPHEN
     Dates: start: 20180125, end: 20180125
  81. ACYCLOVIR. [Concomitant]
     Active Substance: ACYCLOVIR
     Dates: start: 20180122, end: 20180122
  82. ENOXAPARIN [Concomitant]
     Active Substance: ENOXAPARIN
     Dates: start: 20180130, end: 20180130
  83. FENTANYL. [Concomitant]
     Active Substance: FENTANYL
     Dates: start: 20180124, end: 20180124
  84. FOLIC ACID. [Concomitant]
     Active Substance: FOLIC ACID
     Dates: start: 20180126, end: 20180130
  85. LORATADINE. [Concomitant]
     Active Substance: LORATADINE
     Dates: start: 20180126, end: 20180130
  86. OXYCODONE [Concomitant]
     Active Substance: OXYCODONE
     Dates: start: 20180124, end: 20180124
  87. PROCHLORPERAZINE. [Concomitant]
     Active Substance: PROCHLORPERAZINE
     Dates: start: 20180123, end: 20180123
  88. LACTATED RINGERS (CALCIUM CHLORIDE, POTASSIUM CHLORIDE, SODIUM LACTATE [Concomitant]
     Dates: start: 20180123, end: 20180124

REACTIONS (2)
  - Neurotoxicity [Recovered/Resolved]
  - Pyrexia [Recovered/Resolved]

NARRATIVE: CASE EVENT DATE: 20180122
